FAERS Safety Report 5263483-3 (Version None)
Quarter: 2007Q1

REPORT INFORMATION
  Report Type: 
  Country: None (occurrence: None)
  Receive Date: 20061213
  Receipt Date: 20041011
  Transmission Date: 20070707
  Serious: Yes (Other)
  Sender: FDA-Public Use
  Company Number: 2004UW21217

PATIENT
  Age: 74 Year
  Sex: Female
  Weight: 44.452 kg

DRUGS (12)
  1. IRESSA [Suspect]
     Indication: LUNG NEOPLASM MALIGNANT
     Dosage: 250 MG PO
     Route: 048
     Dates: start: 20040318
  2. PREMARIN [Concomitant]
  3. SYNTHROID [Concomitant]
  4. PROZAC [Concomitant]
  5. PROTONIX [Concomitant]
  6. ZYRTEC [Concomitant]
  7. MICRO-K [Concomitant]
  8. LEVOXYL [Concomitant]
  9. CO24 [Concomitant]
  10. ASPIRIN [Concomitant]
  11. ALBUTEROL [Concomitant]
  12. ATROVENT [Concomitant]

REACTIONS (3)
  - ALOPECIA [None]
  - AMNESIA [None]
  - SINUSITIS [None]
